FAERS Safety Report 9853707 (Version 2)
Quarter: 2014Q3

REPORT INFORMATION
  Report Type: Report from Study
  Country: US (occurrence: US)
  Receive Date: 20140129
  Receipt Date: 20140905
  Transmission Date: 20150326
  Serious: Yes (Death, Hospitalization)
  Sender: FDA-Public Use
  Company Number: US-TEVA-458694USA

PATIENT
  Age: 63 Year
  Sex: Male
  Weight: 79.8 kg

DRUGS (4)
  1. CYTARABINE. [Suspect]
     Active Substance: CYTARABINE
     Indication: ACUTE MYELOID LEUKAEMIA
     Dosage: 100MG/M2 CONTINUOUS IV DAYS. I THRU 7
     Dates: start: 20131127
  2. DAUNORUBICIN [Suspect]
     Active Substance: DAUNORUBICIN
     Indication: ACUTE MYELOID LEUKAEMIA
     Dosage: 60MG/M2 IVP DAYS 1-3
     Dates: start: 20131127
  3. DAUNORUBICIN [Suspect]
     Active Substance: DAUNORUBICIN
     Dosage: 60MG/M2 IVP DAYS 1-3
     Dates: start: 20131212, end: 20131214
  4. CYTARABINE. [Suspect]
     Active Substance: CYTARABINE
     Dosage: 100MG/M2 CONTINUOUS IV DAYS. 1 THRU 7
     Dates: start: 20131212, end: 20131218

REACTIONS (2)
  - Febrile neutropenia [Recovered/Resolved]
  - Septic shock [Fatal]

NARRATIVE: CASE EVENT DATE: 20131217
